FAERS Safety Report 4378389-1 (Version None)
Quarter: 2004Q2

REPORT INFORMATION
  Report Type: 
  Country: None (occurrence: None)
  Receive Date: 20040609
  Receipt Date: 20040602
  Transmission Date: 20050107
  Serious: Yes (Death, Hospitalization)
  Sender: FDA-Public Use
  Company Number: 2004216571US

PATIENT
  Sex: Male

DRUGS (3)
  1. ESTRACYST (ESTRAMUSTINE PHOSPHATE) CAPSULE [Suspect]
     Indication: PROSTATE CANCER
     Dosage: CYCLIC 1
     Dates: end: 20040528
  2. PACLITAXEL [Suspect]
     Indication: PROSTATE CANCER
     Dosage: CYCLE 1
     Dates: end: 20040528
  3. ETOPOSIDE [Suspect]
     Indication: PROSTATE CANCER
     Dosage: CYCLE 1
     Dates: end: 20040528

REACTIONS (8)
  - LOSS OF CONSCIOUSNESS [None]
  - MYDRIASIS [None]
  - NAUSEA [None]
  - NEUTROPHIL COUNT DECREASED [None]
  - PAIN IN EXTREMITY [None]
  - PULSE ABSENT [None]
  - URINARY INCONTINENCE [None]
  - WHITE BLOOD CELL COUNT DECREASED [None]
